FAERS Safety Report 16393622 (Version 2)
Quarter: 2019Q2

REPORT INFORMATION
  Report Type: Spontaneous
  Country: US (occurrence: US)
  Receive Date: 20190605
  Receipt Date: 20190627
  Transmission Date: 20190711
  Serious: No
  Sender: FDA-Public Use
  Company Number: US-PFIZER INC-2019232579

PATIENT
  Age: 72 Year
  Sex: Male
  Weight: 76.2 kg

DRUGS (8)
  1. LYRICA [Suspect]
     Active Substance: PREGABALIN
     Indication: NEUROPATHY PERIPHERAL
     Dosage: 75 MG (ONE IN THE MORNING, TWO AT NIGHT)
     Route: 048
     Dates: start: 2010
  2. CELEBREX [Concomitant]
     Active Substance: CELECOXIB
     Dosage: 200 MG, 1X/DAY
  3. FLUTICASONE PROPIONATE/SALMETEROL [Concomitant]
     Dosage: UNK, 1X/DAY (2 SPRAYS ONCE A DAY )
  4. CIALIS [Concomitant]
     Active Substance: TADALAFIL
     Indication: PROSTATE INDURATION
     Dosage: 5 MG, 1X/DAY
  5. LATANOPROST. [Concomitant]
     Active Substance: LATANOPROST
     Dosage: 2 GTT, [ONE DROP IN EACH EYE]
  6. WARFARIN [Concomitant]
     Active Substance: WARFARIN
     Indication: PULMONARY EMBOLISM
     Dosage: UNK, 1X/DAY [7 AND A HALF MG A DAY]
     Route: 048
     Dates: start: 1992
  7. OMEPRAZOLE. [Concomitant]
     Active Substance: OMEPRAZOLE
     Dosage: 20 MG, 2X/DAY
  8. TERAZOSIN [Concomitant]
     Active Substance: TERAZOSIN\TERAZOSIN HYDROCHLORIDE
     Dosage: 10 MG, 1X/DAY

REACTIONS (2)
  - Restless legs syndrome [Unknown]
  - Pain in extremity [Unknown]

NARRATIVE: CASE EVENT DATE: 201905
